FAERS Safety Report 16514691 (Version 1)
Quarter: 2019Q3

REPORT INFORMATION
  Report Type: Spontaneous
  Country: US (occurrence: US)
  Receive Date: 20190702
  Receipt Date: 20190702
  Transmission Date: 20191004
  Serious: Yes (Other)
  Sender: FDA-Public Use
  Company Number: US-APOTEX-2019AP017454

PATIENT
  Sex: Female
  Weight: 2.74 kg

DRUGS (1)
  1. AMIODARONE [Suspect]
     Active Substance: AMIODARONE
     Indication: PALPITATIONS
     Dosage: UNK
     Route: 064

REACTIONS (4)
  - Infantile apnoea [Unknown]
  - Congenital hypothyroidism [Recovered/Resolved]
  - Goitre congenital [Recovering/Resolving]
  - Foetal exposure during pregnancy [Unknown]
